FAERS Safety Report 9915851 (Version 2)
Quarter: 2014Q1

REPORT INFORMATION
  Report Type: Report from Study
  Country: FR (occurrence: FR)
  Receive Date: 20140221
  Receipt Date: 20140221
  Transmission Date: 20141002
  Serious: Yes (Hospitalization, Other)
  Sender: FDA-Public Use
  Company Number: FR-ROCHE-1161385

PATIENT
  Age: 60 Year
  Sex: Male

DRUGS (27)
  1. RITUXIMAB [Suspect]
     Indication: RHEUMATOID ARTHRITIS
     Dosage: DAY 1
     Route: 042
     Dates: start: 20051005
  2. RITUXIMAB [Suspect]
     Route: 042
     Dates: start: 20051019
  3. RITUXIMAB [Suspect]
     Route: 042
     Dates: start: 20060706
  4. RITUXIMAB [Suspect]
     Route: 042
     Dates: start: 20060720
  5. RITUXIMAB [Suspect]
     Route: 042
     Dates: start: 20070125
  6. RITUXIMAB [Suspect]
     Route: 042
     Dates: start: 20070208
  7. RITUXIMAB [Suspect]
     Dosage: SINGLE INFUSION
     Route: 042
     Dates: start: 20070907
  8. RITUXIMAB [Suspect]
     Route: 042
     Dates: start: 20080212
  9. RITUXIMAB [Suspect]
     Route: 042
     Dates: start: 20080212
  10. RITUXIMAB [Suspect]
     Route: 042
     Dates: start: 20081124
  11. RITUXIMAB [Suspect]
     Route: 042
     Dates: start: 20081208
  12. RITUXIMAB [Suspect]
     Route: 042
     Dates: start: 20090901
  13. RITUXIMAB [Suspect]
     Route: 042
     Dates: start: 20090915
  14. RITUXIMAB [Suspect]
     Route: 042
     Dates: start: 20100219
  15. RITUXIMAB [Suspect]
     Route: 042
     Dates: start: 20100305
  16. RITUXIMAB [Suspect]
     Route: 042
     Dates: start: 20110706
  17. RITUXIMAB [Suspect]
     Route: 042
     Dates: start: 20110719
  18. RITUXIMAB [Suspect]
     Route: 042
     Dates: end: 20121219
  19. METHOTREXATE [Concomitant]
     Route: 065
  20. CORTANCYL [Concomitant]
     Route: 065
  21. CORTANCYL [Concomitant]
     Route: 065
  22. CORTANCYL [Concomitant]
     Route: 065
  23. CORTANCYL [Concomitant]
     Route: 065
  24. CORTANCYL [Concomitant]
     Route: 065
  25. METHYLPREDNISOLONE [Concomitant]
     Route: 065
  26. PARACETAMOL [Concomitant]
  27. ELISOR [Concomitant]
     Dosage: 20 MG/L
     Route: 065

REACTIONS (15)
  - Phlebectomy [Unknown]
  - Febrile infection [Unknown]
  - Acarodermatitis [Unknown]
  - Haemoptysis [Unknown]
  - Hiatus hernia [Recovered/Resolved]
  - Barrett^s oesophagus [Recovered/Resolved]
  - Renal failure acute [Unknown]
  - Cardiopulmonary failure [Unknown]
  - Rheumatoid nodule [Unknown]
  - Hypotension [Recovered/Resolved]
  - Bronchitis [Unknown]
  - Haemorrhage [Unknown]
  - Hyperkeratosis [Unknown]
  - Skin ulcer [Recovered/Resolved]
  - Pulmonary mass [Unknown]
